FAERS Safety Report 6239912-5 (Version None)
Quarter: 2009Q2

REPORT INFORMATION
  Report Type: 
  Country: None (occurrence: None)
  Receive Date: 20090619
  Receipt Date: 20090608
  Transmission Date: 20091009
  Serious: Yes (Hospitalization)
  Sender: FDA-Public Use
  Company Number: 09-000846

PATIENT
  Sex: Male

DRUGS (1)
  1. DOVONEX [Suspect]
     Indication: PSORIASIS
     Dosage: DAILY, TOPICAL
     Route: 061
     Dates: start: 20090501

REACTIONS (1)
  - CEREBROVASCULAR ACCIDENT [None]
